FAERS Safety Report 5120450-8 (Version None)
Quarter: 2006Q4

REPORT INFORMATION
  Report Type: 
  Country: None (occurrence: None)
  Receive Date: 20061004
  Receipt Date: 20060905
  Transmission Date: 20070319
  Serious: Yes (Death)
  Sender: FDA-Public Use
  Company Number: 2006AP04139

PATIENT
  Age: 74 Year
  Sex: Male
  Weight: 50 kg

DRUGS (11)
  1. MEROPEN [Suspect]
     Indication: DECUBITUS ULCER
     Route: 041
     Dates: start: 20060407, end: 20060412
  2. MEROPEN [Suspect]
     Route: 041
     Dates: start: 20060502, end: 20060511
  3. INTRALIPID 20% [Suspect]
     Indication: MEDICAL DIET
     Route: 041
     Dates: start: 20060501, end: 20060508
  4. FULCALIQ NO 2 [Concomitant]
     Indication: MEDICAL DIET
     Route: 041
     Dates: start: 20060408, end: 20060430
  5. FULCALIQ NO 3 [Concomitant]
     Indication: MEDICAL DIET
     Route: 041
     Dates: start: 20060501, end: 20060511
  6. GRAMALIL [Concomitant]
     Indication: CEREBRAL INFARCTION
     Route: 048
     Dates: end: 20060512
  7. PARIET [Concomitant]
     Indication: PROPHYLAXIS
     Route: 048
     Dates: end: 20060512
  8. RENIVACE [Concomitant]
     Indication: HYPERTENSION
     Route: 048
     Dates: end: 20060512
  9. NORVASC [Concomitant]
     Indication: HYPERTENSION
     Route: 048
     Dates: end: 20060512
  10. THYRADIN S TAB [Concomitant]
     Indication: HYPOTHYROIDISM
     Route: 048
     Dates: end: 20060512
  11. MAGMIT [Concomitant]
     Indication: CONSTIPATION
     Route: 048
     Dates: end: 20060512

REACTIONS (5)
  - ANAEMIA [None]
  - CARDIAC FAILURE [None]
  - HAEMORRHAGE [None]
  - MALNUTRITION [None]
  - THROMBOCYTOPENIA [None]
